FAERS Safety Report 20055409 (Version 2)
Quarter: 2021Q4

REPORT INFORMATION
  Report Type: Report from Study
  Country: IL (occurrence: IL)
  Receive Date: 20211110
  Receipt Date: 20211129
  Transmission Date: 20220303
  Serious: Yes (Other)
  Sender: FDA-Public Use
  Company Number: IL-GILEAD-2021-0556083

PATIENT
  Age: 67 Year
  Sex: Male
  Weight: 68.5 kg

DRUGS (22)
  1. SACITUZUMAB GOVITECAN [Suspect]
     Active Substance: SACITUZUMAB GOVITECAN
     Indication: Non-small cell lung cancer metastatic
     Dosage: 700 MG, 1 IN 3 WK
     Route: 042
     Dates: start: 20210620
  2. SACITUZUMAB GOVITECAN [Suspect]
     Active Substance: SACITUZUMAB GOVITECAN
     Dosage: 120 MG
     Route: 042
     Dates: start: 20210831
  3. ATEZOLIZUMAB [Suspect]
     Active Substance: ATEZOLIZUMAB
     Indication: Non-small cell lung cancer metastatic
     Dosage: 1200 MG, Q3WK
     Route: 041
     Dates: start: 20210620
  4. ATEZOLIZUMAB [Suspect]
     Active Substance: ATEZOLIZUMAB
     Dosage: 693 MG
     Route: 041
     Dates: start: 20210824
  5. ENOXAPARIN SODIUM [Concomitant]
     Active Substance: ENOXAPARIN SODIUM
     Route: 058
  6. ENOXAPARIN SODIUM [Concomitant]
     Active Substance: ENOXAPARIN SODIUM
     Route: 058
  7. EZECOR [EZETIMIBE] [Concomitant]
     Indication: Hypercholesterolaemia
     Route: 048
  8. ATENOLOL [Concomitant]
     Active Substance: ATENOLOL
     Route: 048
  9. RAMIPRIL [Concomitant]
     Active Substance: RAMIPRIL
     Dosage: 1.25 MG, PRN
     Route: 048
     Dates: start: 2002
  10. ROSUVASTATIN CALCIUM [Concomitant]
     Active Substance: ROSUVASTATIN CALCIUM
     Indication: Hypercholesterolaemia
     Dosage: 40 MG
     Route: 048
     Dates: start: 2002
  11. AQUA-CARE [Concomitant]
  12. DERMACOMBIN [Concomitant]
     Indication: Drug eruption
     Dosage: UNK
     Route: 061
     Dates: start: 20210803, end: 20210828
  13. ACETAMINOPHEN [Concomitant]
     Active Substance: ACETAMINOPHEN
     Dosage: 1000 MG
     Route: 048
     Dates: start: 20210824, end: 20210824
  14. ACETAMINOPHEN [Concomitant]
     Active Substance: ACETAMINOPHEN
     Dosage: 1000 MG
     Route: 048
     Dates: start: 20210831, end: 20210831
  15. METOCLOPRAMIDE HYDROCHLORIDE [Concomitant]
     Active Substance: METOCLOPRAMIDE HYDROCHLORIDE
     Dosage: 10 MG
     Route: 042
     Dates: start: 20210824, end: 20210824
  16. METOCLOPRAMIDE HYDROCHLORIDE [Concomitant]
     Active Substance: METOCLOPRAMIDE HYDROCHLORIDE
     Dosage: 20 MG
     Route: 048
     Dates: start: 20210831, end: 20210831
  17. METOCLOPRAMIDE HYDROCHLORIDE [Concomitant]
     Active Substance: METOCLOPRAMIDE HYDROCHLORIDE
     Dosage: 10 MG
     Route: 042
     Dates: start: 20210831, end: 20210831
  18. GRANISETRON [Concomitant]
     Active Substance: GRANISETRON
     Dosage: 1 MG
     Route: 042
     Dates: start: 20210824, end: 20210824
  19. GRANISETRON [Concomitant]
     Active Substance: GRANISETRON
     Dosage: 1 MG
     Route: 042
     Dates: start: 20210831, end: 20210831
  20. LORATADINE [Concomitant]
     Active Substance: LORATADINE
  21. FEXOFENADINE [Concomitant]
     Active Substance: FEXOFENADINE HYDROCHLORIDE
     Indication: Drug eruption
     Dosage: 180 MG, QD
     Route: 048
     Dates: start: 20210810, end: 20210828
  22. MODERNA COVID-19 VACCINE [Concomitant]
     Active Substance: ELASOMERAN
     Dosage: 1 UNIT
     Route: 030
     Dates: start: 20210817, end: 20210817

REACTIONS (1)
  - Pneumonitis [Not Recovered/Not Resolved]

NARRATIVE: CASE EVENT DATE: 20210914
